FAERS Safety Report 12069707 (Version 4)
Quarter: 2016Q2

REPORT INFORMATION
  Report Type: Spontaneous
  Country: US (occurrence: US)
  Receive Date: 20160211
  Receipt Date: 20160608
  Transmission Date: 20160815
  Serious: No
  Sender: FDA-Public Use
  Company Number: US-PFIZER INC-2016042410

PATIENT
  Age: 71 Year
  Sex: Male
  Weight: 105 kg

DRUGS (2)
  1. ADVIL [Suspect]
     Active Substance: IBUPROFEN
     Indication: PAIN
     Dosage: 12 DF, UNK
  2. ALEVE [Suspect]
     Active Substance: NAPROXEN SODIUM
     Indication: ARTHRALGIA
     Dosage: 12 DF, DAILY

REACTIONS (3)
  - Intentional product use issue [Unknown]
  - Overdose [Recovered/Resolved]
  - Drug ineffective [Unknown]
